FAERS Safety Report 15642320 (Version 3)
Quarter: 2018Q4

REPORT INFORMATION
  Report Type: Report from Study
  Country: None (occurrence: US)
  Receive Date: 20181121
  Receipt Date: 20181216
  Transmission Date: 20190205
  Serious: Yes (Hospitalization, Other)
  Sender: FDA-Public Use
  Company Number: US-ABBVIE-18K-163-2559680-00

PATIENT
  Age: 19 Year
  Sex: Female
  Weight: 58.57 kg

DRUGS (1)
  1. HUMIRA [Suspect]
     Active Substance: ADALIMUMAB
     Indication: CROHN^S DISEASE
     Route: 058
     Dates: start: 20180712

REACTIONS (18)
  - Diarrhoea haemorrhagic [Recovered/Resolved]
  - Loss of consciousness [Recovered/Resolved]
  - Intestinal haemorrhage [Unknown]
  - Loss of personal independence in daily activities [Not Recovered/Not Resolved]
  - Abdominal pain upper [Recovering/Resolving]
  - Injection site pain [Unknown]
  - Gastrointestinal inflammation [Recovering/Resolving]
  - Malaise [Not Recovered/Not Resolved]
  - Fatigue [Recovering/Resolving]
  - Decreased appetite [Recovering/Resolving]
  - Drug ineffective [Not Recovered/Not Resolved]
  - Injection site bruising [Unknown]
  - Rectal haemorrhage [Recovering/Resolving]
  - Headache [Recovering/Resolving]
  - Sinusitis [Unknown]
  - Abdominal pain [Recovered/Resolved]
  - Gastrointestinal infection [Unknown]
  - Crohn^s disease [Recovering/Resolving]

NARRATIVE: CASE EVENT DATE: 2018
